FAERS Safety Report 21501237 (Version 5)
Quarter: 2023Q4

REPORT INFORMATION
  Report Type: Spontaneous
  Country: CA (occurrence: CA)
  Receive Date: 20221025
  Receipt Date: 20231030
  Transmission Date: 20240110
  Serious: Yes (Other)
  Sender: FDA-Public Use
  Company Number: CA-PFIZER INC-202201245978

PATIENT
  Age: 24 Year
  Sex: Female
  Weight: 61 kg

DRUGS (5)
  1. ABRILADA [Suspect]
     Active Substance: ADALIMUMAB-AFZB
     Indication: Crohn^s disease
     Dosage: 40 MG, 160MG WEEK 0, 80MG WEEK 2, THEN 40MG EVERY 2 WEEKS
     Route: 058
     Dates: start: 20220725, end: 202310
  2. ABRILADA [Suspect]
     Active Substance: ADALIMUMAB-AFZB
     Dosage: 1 DF
     Route: 058
     Dates: start: 202207, end: 202309
  3. BUDESONIDE [Concomitant]
     Active Substance: BUDESONIDE
     Dosage: UNK, AS NEEDED
     Dates: start: 2021
  4. FOLIC ACID [Concomitant]
     Active Substance: FOLIC ACID
     Dosage: 1 MG
  5. PREDNISONE [Concomitant]
     Active Substance: PREDNISONE
     Dosage: UNK, TAPERING DOSE
     Dates: start: 202112

REACTIONS (6)
  - Condition aggravated [Unknown]
  - Therapeutic response shortened [Unknown]
  - Drug specific antibody [Unknown]
  - Muscle spasms [Not Recovered/Not Resolved]
  - Abdominal distension [Not Recovered/Not Resolved]
  - Rash pruritic [Unknown]

NARRATIVE: CASE EVENT DATE: 20220101
